FAERS Safety Report 13075221 (Version 2)
Quarter: 2017Q1

REPORT INFORMATION
  Report Type: Spontaneous
  Country: US (occurrence: US)
  Receive Date: 20161230
  Receipt Date: 20170317
  Transmission Date: 20170428
  Serious: Yes (Hospitalization, Other)
  Sender: FDA-Public Use
  Company Number: US-WEST-WARD PHARMACEUTICALS CORP.-US-H14001-16-03115

PATIENT
  Age: 50 Year
  Sex: Male

DRUGS (2)
  1. INFUMORPH [Suspect]
     Active Substance: MORPHINE SULFATE
     Indication: POST LAMINECTOMY SYNDROME
     Route: 037
     Dates: start: 2012
  2. INFUMORPH [Suspect]
     Active Substance: MORPHINE SULFATE
     Indication: PAIN

REACTIONS (7)
  - Pain [Recovered/Resolved]
  - Medical device site oedema [Recovered/Resolved]
  - C-reactive protein increased [Recovered/Resolved]
  - Swelling [Recovered/Resolved]
  - Red blood cell sedimentation rate increased [Recovered/Resolved]
  - Medical device site rash [Recovered/Resolved]
  - Medical device site erythema [Recovered/Resolved]

NARRATIVE: CASE EVENT DATE: 2012
